FAERS Safety Report 15376400 (Version 1)
Quarter: 2018Q3

REPORT INFORMATION
  Report Type: Spontaneous
  Country: DE (occurrence: DE)
  Receive Date: 20180912
  Receipt Date: 20180912
  Transmission Date: 20181010
  Serious: Yes (Congenital Anomaly)
  Sender: FDA-Public Use
  Company Number: PHHY2018DE094529

PATIENT
  Age: 1 Day
  Sex: Female
  Weight: 2.52 kg

DRUGS (7)
  1. TEGRETAL [Concomitant]
     Active Substance: CARBAMAZEPINE
     Indication: FOETAL EXPOSURE DURING PREGNANCY
     Dosage: MATERNAL DOSE: 1200 [MG/D ]/ 400?1200 MG/D
     Route: 064
  2. FRISIUM [Concomitant]
     Active Substance: CLOBAZAM
     Indication: FOETAL EXPOSURE DURING PREGNANCY
     Dosage: MATERNAL DOSE: 5 [MG/D ]
     Route: 064
     Dates: start: 20160928, end: 20161006
  3. JODTHYROX [Concomitant]
     Active Substance: LEVOTHYROXINE SODIUM\POTASSIUM IODIDE
     Indication: FOETAL EXPOSURE DURING PREGNANCY
     Dosage: MATERNAL DOSE: 100 [?G/D ] / 131 [?G/D ]
     Route: 064
     Dates: start: 20160307, end: 20161117
  4. FOLISURE [Concomitant]
     Indication: FOETAL EXPOSURE DURING PREGNANCY
     Dosage: MATERNAL DOSE: 5 [MG/D ]/ + PRECONC
     Route: 064
     Dates: start: 20160307, end: 20161117
  5. DIAZEPAM. [Concomitant]
     Active Substance: DIAZEPAM
     Indication: FOETAL EXPOSURE DURING PREGNANCY
     Dosage: UNK
     Route: 064
  6. LAMOTRIGINE. [Suspect]
     Active Substance: LAMOTRIGINE
     Indication: FOETAL EXPOSURE DURING PREGNANCY
     Dosage: MATERNAL DOSE: 400 [MG/D ]/ INITIAL 200 MG/D, DOSAGE INCREASE TO 400 MG/D OVER WEEKS
     Route: 064
  7. AMPICILLIN [Concomitant]
     Active Substance: AMPICILLIN
     Indication: FOETAL EXPOSURE DURING PREGNANCY
     Dosage: UNK
     Route: 064

REACTIONS (1)
  - Atrial septal defect [Recovered/Resolved]

NARRATIVE: CASE EVENT DATE: 20161117
